FAERS Safety Report 4615460-0 (Version None)
Quarter: 2005Q1

REPORT INFORMATION
  Report Type: 
  Country: None (occurrence: None)
  Receive Date: 20050311
  Receipt Date: 20041111
  Transmission Date: 20050727
  Serious: No
  Sender: FDA-Public Use
  Company Number: 2004-BP-08615BP

PATIENT
  Age: 66 Year
  Sex: Female

DRUGS (6)
  1. SPIRIVA [Suspect]
     Indication: CHRONIC OBSTRUCTIVE PULMONARY DISEASE
     Dosage: 18 MCG (18 MCG, 1 PUFF/DAY),IH
     Dates: start: 20040910, end: 20040929
  2. SPIRIVA [Suspect]
  3. SYNTHROID [Concomitant]
  4. ADVAIR DISKUS 100/50 [Concomitant]
  5. PREDNISONE [Concomitant]
  6. COUGH SYRUP [Concomitant]

REACTIONS (3)
  - ABDOMINAL PAIN [None]
  - BLADDER DISORDER [None]
  - DIARRHOEA [None]
